FAERS Safety Report 21770592 (Version 2)
Quarter: 2022Q4

REPORT INFORMATION
  Report Type: Report from Study
  Country: US (occurrence: US)
  Receive Date: 20221223
  Receipt Date: 20221223
  Transmission Date: 20230112
  Serious: Yes (Hospitalization)
  Sender: FDA-Public Use
  Company Number: US-ABBVIE-4246817

PATIENT
  Sex: Female

DRUGS (2)
  1. HUMIRA [Suspect]
     Active Substance: ADALIMUMAB
     Indication: Crohn^s disease
     Dosage: EVENT ONSET DATE FOR PNEUMONIA AT LEAST SHOULD BE 2022/?THERAPY CESSATION DATE FOR HUMIRA AT LEAS...
     Route: 058
     Dates: start: 20220615
  2. HUMIRA [Suspect]
     Active Substance: ADALIMUMAB
     Dosage: CITRATE FREE
     Route: 058
     Dates: start: 20220829

REACTIONS (1)
  - Pneumonia [Recovering/Resolving]
